FAERS Safety Report 4516978-1 (Version None)
Quarter: 2004Q4

REPORT INFORMATION
  Report Type: 
  Country: None (occurrence: None)
  Receive Date: 20041130
  Receipt Date: 20041116
  Transmission Date: 20050328
  Serious: Yes (Disabling, Other)
  Sender: FDA-Public Use
  Company Number: GBS040915657

PATIENT
  Age: 69 Year
  Sex: Female
  Weight: 70 kg

DRUGS (6)
  1. FORTEO [Suspect]
     Indication: OSTEOPOROSIS
     Dosage: 20 UG DAY
     Dates: start: 20040201, end: 20040930
  2. FLUOXETINE [Concomitant]
  3. CARDURA [Concomitant]
  4. BENDROFLUAZIDE [Concomitant]
  5. AMITRIPTYLINE HCL [Concomitant]
  6. VIOXX [Concomitant]

REACTIONS (3)
  - BONE PAIN [None]
  - DIFFICULTY IN WALKING [None]
  - OSTEOMA [None]
